FAERS Safety Report 11813817 (Version 1)
Quarter: 2015Q4

REPORT INFORMATION
  Report Type: Spontaneous
  Country: US (occurrence: None)
  Receive Date: 20151208
  Receipt Date: 20151208
  Transmission Date: 20160305
  Serious: Yes (Hospitalization)
  Sender: FDA-Public Use
  Company Number: None

PATIENT
  Age: 51 Year
  Sex: Male
  Weight: 90.7 kg

DRUGS (3)
  1. BENADRYL [Concomitant]
     Active Substance: DIPHENHYDRAMINE HYDROCHLORIDE
  2. VIAGRA [Suspect]
     Active Substance: SILDENAFIL CITRATE
     Indication: ERECTILE DYSFUNCTION
     Dosage: RECENT
     Route: 048
  3. ASA [Concomitant]
     Active Substance: ASPIRIN

REACTIONS (4)
  - Musculoskeletal pain [None]
  - Pain [None]
  - Chest pain [None]
  - Oropharyngeal pain [None]

NARRATIVE: CASE EVENT DATE: 20150405
